FAERS Safety Report 6207919-X (Version None)
Quarter: 2009Q2

REPORT INFORMATION
  Report Type: 
  Country: None (occurrence: None)
  Receive Date: 20090529
  Receipt Date: 20090526
  Transmission Date: 20091009
  Serious: Yes (Other)
  Sender: FDA-Public Use
  Company Number: DE-B.I. PHARMACEUTICALS,INC./RIDGEFIELD-2009-DE-03960DE

PATIENT
  Age: 88 Year
  Sex: Female

DRUGS (2)
  1. AGGRENOX [Suspect]
     Dosage: 25ANZ
     Route: 048
  2. AGGRENOX [Suspect]
     Route: 048

REACTIONS (3)
  - DRUG ABUSE [None]
  - OVERDOSE [None]
  - SUICIDE ATTEMPT [None]
